FAERS Safety Report 9626967 (Version 1)
Quarter: 2013Q4

REPORT INFORMATION
  Report Type: Report from Study
  Country: US (occurrence: US)
  Receive Date: 20131016
  Receipt Date: 20131016
  Transmission Date: 20140711
  Serious: Yes (Hospitalization)
  Sender: FDA-Public Use
  Company Number: PHEH2013US021449

PATIENT
  Age: 46 Year
  Sex: Male

DRUGS (2)
  1. TOBI [Suspect]
     Indication: BRONCHIECTASIS
     Dosage: UNK UKN, UNK
  2. TOBI [Suspect]
     Indication: HETEROTAXIA
     Dosage: 300 MG, BID

REACTIONS (1)
  - Cardiac disorder [Unknown]
